FAERS Safety Report 4537028-7 (Version None)
Quarter: 2004Q4

REPORT INFORMATION
  Report Type: 
  Country: None (occurrence: None)
  Receive Date: 20041220
  Receipt Date: 20041215
  Transmission Date: 20050328
  Serious: Yes (Hospitalization)
  Sender: FDA-Public Use
  Company Number: HQWYE979215DEC04

PATIENT
  Age: 65 Year
  Sex: Male

DRUGS (4)
  1. AMIODARONE (AMIODARONE, INJECTION) [Suspect]
     Indication: ATRIAL FIBRILLATION
     Dosage: 1.2 G 1X PER 1 DAY
     Route: 042
     Dates: start: 20041126, end: 20041128
  2. ARAVA [Suspect]
     Indication: RHEUMATOID ARTHRITIS
     Dosage: 20 MG 1X PER 1 DAY
     Route: 048
     Dates: start: 20041108, end: 20041126
  3. PREDNISOLONE [Concomitant]
  4. ACETAMINOPHEN [Concomitant]

REACTIONS (3)
  - BLOOD CREATINE PHOSPHOKINASE INCREASED [None]
  - HEPATIC FAILURE [None]
  - RENAL FAILURE ACUTE [None]
